FAERS Safety Report 19774706 (Version 9)
Quarter: 2023Q4

REPORT INFORMATION
  Report Type: Report from Study
  Country: US (occurrence: US)
  Receive Date: 20210901
  Receipt Date: 20231026
  Transmission Date: 20240109
  Serious: Yes (Hospitalization, Other)
  Sender: FDA-Public Use
  Company Number: US-TAKEDA-2021TUS053743

PATIENT
  Sex: Female
  Weight: 79 kg

DRUGS (3)
  1. PONATINIB [Suspect]
     Active Substance: PONATINIB
     Indication: Chronic myeloid leukaemia recurrent
     Dosage: 30 MILLIGRAM, QD
     Route: 048
  2. PONATINIB [Suspect]
     Active Substance: PONATINIB
     Indication: Myeloid leukaemia
  3. PONATINIB [Suspect]
     Active Substance: PONATINIB
     Indication: Chronic myeloid leukaemia

REACTIONS (6)
  - Gastric ulcer [Unknown]
  - Pancreatic enlargement [Unknown]
  - Abdominal pain upper [Unknown]
  - Memory impairment [Unknown]
  - Product dose omission issue [Unknown]
  - Off label use [Unknown]
